FAERS Safety Report 8269361-X (Version None)
Quarter: 2012Q2

REPORT INFORMATION
  Report Type: 
  Country: None (occurrence: None)
  Receive Date: 20120409
  Receipt Date: 20120327
  Transmission Date: 20120825
  Serious: Yes (Death)
  Sender: FDA-Public Use
  Company Number: FR-ROCHE-CID000000001985541

PATIENT
  Sex: Male

DRUGS (3)
  1. AVASTIN [Suspect]
     Indication: RECTAL CANCER
     Route: 042
     Dates: start: 20120228, end: 20120228
  2. IRINOTECAN HCL [Suspect]
     Indication: RECTAL CANCER
     Route: 042
     Dates: start: 20120228, end: 20120228
  3. FLUOROURACIL [Suspect]
     Indication: RECTAL CANCER
     Route: 042
     Dates: start: 20120228, end: 20120301

REACTIONS (5)
  - SYNCOPE [None]
  - BRAIN INJURY [None]
  - ABDOMINAL PAIN [None]
  - NAUSEA [None]
  - CARDIO-RESPIRATORY ARREST [None]
